FAERS Safety Report 6404657-5 (Version None)
Quarter: 2009Q4

REPORT INFORMATION
  Report Type: 
  Country: None (occurrence: None)
  Receive Date: 20091016
  Receipt Date: 20091005
  Transmission Date: 20100525
  Serious: Yes (Other)
  Sender: FDA-Public Use
  Company Number: GB-PFIZER INC-2009283289

PATIENT

DRUGS (1)
  1. NICOTINE [Suspect]
     Indication: DRUG USE FOR UNKNOWN INDICATION
     Route: 055

REACTIONS (3)
  - CONVULSION [None]
  - SPEECH DISORDER [None]
  - TONGUE BITING [None]
